FAERS Safety Report 13734119 (Version 1)
Quarter: 2017Q3

REPORT INFORMATION
  Report Type: Spontaneous
  Country: US (occurrence: US)
  Receive Date: 20170708
  Receipt Date: 20170708
  Transmission Date: 20171127
  Serious: Yes (Death, Other)
  Sender: FDA-Public Use
  Company Number: US-TORRENT-00003160

PATIENT
  Age: 38 Year
  Sex: Male
  Weight: 91 kg

DRUGS (8)
  1. DULOXETINE. [Suspect]
     Active Substance: DULOXETINE
  2. PREGABALIN. [Suspect]
     Active Substance: PREGABALIN
  3. LORAZEPAM. [Suspect]
     Active Substance: LORAZEPAM
  4. OMEPRAZOLE. [Suspect]
     Active Substance: OMEPRAZOLE
  5. VERAPAMIL [Suspect]
     Active Substance: VERAPAMIL HYDROCHLORIDE
  6. PROPRANOLOL HYDROCHLORIDE. [Suspect]
     Active Substance: PROPRANOLOL HYDROCHLORIDE
  7. DICLOFENAC [Suspect]
     Active Substance: DICLOFENAC
  8. TADALAFIL [Suspect]
     Active Substance: TADALAFIL

REACTIONS (3)
  - Toxicity to various agents [Fatal]
  - Unresponsive to stimuli [Unknown]
  - Intentional overdose [Fatal]
